FAERS Safety Report 6481443-1 (Version None)
Quarter: 2009Q4

REPORT INFORMATION
  Report Type: 
  Country: None (occurrence: None)
  Receive Date: 20091123
  Receipt Date: 20091002
  Transmission Date: 20100525
  Serious: No
  Sender: FDA-Public Use
  Company Number: 8052854

PATIENT
  Age: 47 Year
  Sex: Female

DRUGS (1)
  1. CIMZIA [Suspect]
     Indication: CROHN'S DISEASE
     Dosage: 400 MG SC
     Route: 058
     Dates: start: 20091219

REACTIONS (5)
  - DYSKINESIA [None]
  - MADAROSIS [None]
  - MEMORY IMPAIRMENT [None]
  - MIGRAINE [None]
  - PHOTOPHOBIA [None]
